FAERS Safety Report 4759215-5 (Version None)
Quarter: 2005Q3

REPORT INFORMATION
  Report Type: 
  Country: None (occurrence: None)
  Receive Date: 20050831
  Receipt Date: 20050824
  Transmission Date: 20060218
  Serious: Yes (Death)
  Sender: FDA-Public Use
  Company Number: 200420547BWH

PATIENT
  Age: 38 Year
  Sex: Male
  Weight: 46.2 kg

DRUGS (5)
  1. MOXIFLOXACIN HCL [Suspect]
     Indication: PULMONARY TUBERCULOSIS
     Dosage: QD, ORAL
     Route: 048
     Dates: start: 20040902, end: 20040914
  2. ISONIAZID [Suspect]
     Dosage: 800 MG, QD, ORAL
     Route: 048
     Dates: start: 20040902
  3. RIFAMPIN [Suspect]
     Dosage: 600 MG, QD, ORAL
     Route: 048
     Dates: start: 20040902
  4. PYRAZINAMIDE [Suspect]
     Dosage: 1500 MG, QD, ORAL
     Route: 048
     Dates: start: 20040902
  5. B6 [Concomitant]

REACTIONS (6)
  - ABDOMINAL PAIN [None]
  - FALL [None]
  - FEELING HOT [None]
  - HYPERSENSITIVITY [None]
  - PAIN IN EXTREMITY [None]
  - PULMONARY EMBOLISM [None]
